FAERS Safety Report 24179330 (Version 2)
Quarter: 2024Q3

REPORT INFORMATION
  Report Type: Spontaneous
  Country: BR (occurrence: BR)
  Receive Date: 20240806
  Receipt Date: 20240912
  Transmission Date: 20241017
  Serious: Yes (Other)
  Sender: SANDOZ
  Company Number: BR-002147023-NVSC2024BR158458

PATIENT
  Sex: Female
  Weight: 78 kg

DRUGS (35)
  1. ENTRESTO [Suspect]
     Active Substance: SACUBITRIL\VALSARTAN
     Indication: Cardiac failure
     Dosage: 50 MG, BID
     Route: 048
  2. ROSUVASTATIN [Suspect]
     Active Substance: ROSUVASTATIN\ROSUVASTATIN CALCIUM
     Indication: Product used for unknown indication
     Dosage: UNK
     Route: 065
  3. ALPRAZOLAM [Concomitant]
     Active Substance: ALPRAZOLAM
     Dosage: 1 MG
     Route: 065
  4. ALPRAZOLAM [Concomitant]
     Active Substance: ALPRAZOLAM
     Dosage: 2 MG
     Route: 065
  5. ALPRAZOLAM [Concomitant]
     Active Substance: ALPRAZOLAM
     Dosage: 0 MG
     Route: 065
  6. ALPRAZOLAM [Concomitant]
     Active Substance: ALPRAZOLAM
     Indication: Product used for unknown indication
     Dosage: UNK
     Route: 065
  7. EZETIMIBE [Concomitant]
     Active Substance: EZETIMIBE
     Dosage: 50 MG, BID
     Route: 065
  8. EZETIMIBE [Concomitant]
     Active Substance: EZETIMIBE
     Indication: Product used for unknown indication
     Dosage: UNK
     Route: 065
  9. DAPAGLIFLOZIN [Concomitant]
     Active Substance: DAPAGLIFLOZIN
     Dosage: 10 MG
     Route: 065
  10. DAPAGLIFLOZIN [Concomitant]
     Active Substance: DAPAGLIFLOZIN
     Dosage: 5 MG
     Route: 065
  11. DAPAGLIFLOZIN [Concomitant]
     Active Substance: DAPAGLIFLOZIN
     Indication: Product used for unknown indication
     Dosage: UNK
     Route: 065
  12. GLIFAGE [Concomitant]
     Active Substance: METFORMIN HYDROCHLORIDE
     Dosage: 1 G
     Route: 065
  13. GLIFAGE [Concomitant]
     Active Substance: METFORMIN HYDROCHLORIDE
     Dosage: 500 MG
     Route: 065
  14. GLIFAGE [Concomitant]
     Active Substance: METFORMIN HYDROCHLORIDE
     Dosage: 850 MG
     Route: 065
  15. GLIFAGE [Concomitant]
     Active Substance: METFORMIN HYDROCHLORIDE
     Indication: Product used for unknown indication
     Dosage: UNK
     Route: 065
  16. OLANZAPINE [Concomitant]
     Active Substance: OLANZAPINE
     Indication: Product used for unknown indication
     Dosage: UNK
     Route: 065
  17. PURAN [Concomitant]
     Active Substance: LEVOTHYROXINE SODIUM
     Dosage: 100 UG
     Route: 065
  18. PURAN [Concomitant]
     Active Substance: LEVOTHYROXINE SODIUM
     Dosage: 112 UG
     Route: 065
  19. PURAN [Concomitant]
     Active Substance: LEVOTHYROXINE SODIUM
     Dosage: 125 UG
     Route: 065
  20. PURAN [Concomitant]
     Active Substance: LEVOTHYROXINE SODIUM
     Dosage: 13 UG
     Route: 065
  21. PURAN [Concomitant]
     Active Substance: LEVOTHYROXINE SODIUM
     Dosage: 150 UG
     Route: 065
  22. PURAN [Concomitant]
     Active Substance: LEVOTHYROXINE SODIUM
     Dosage: 150 UG
     Route: 065
  23. PURAN [Concomitant]
     Active Substance: LEVOTHYROXINE SODIUM
     Dosage: 175 UG
     Route: 065
  24. PURAN [Concomitant]
     Active Substance: LEVOTHYROXINE SODIUM
     Dosage: 200 UG
     Route: 065
  25. PURAN [Concomitant]
     Active Substance: LEVOTHYROXINE SODIUM
     Dosage: 25 UG
     Route: 065
  26. PURAN [Concomitant]
     Active Substance: LEVOTHYROXINE SODIUM
     Dosage: 300 UG
     Route: 065
  27. PURAN [Concomitant]
     Active Substance: LEVOTHYROXINE SODIUM
     Dosage: 50 UG
     Route: 065
  28. PURAN [Concomitant]
     Active Substance: LEVOTHYROXINE SODIUM
     Dosage: 75 UG
     Route: 065
  29. PURAN [Concomitant]
     Active Substance: LEVOTHYROXINE SODIUM
     Dosage: 88 UG
     Route: 065
  30. PURAN [Concomitant]
     Active Substance: LEVOTHYROXINE SODIUM
     Indication: Product used for unknown indication
     Dosage: UNK
     Route: 065
  31. METOPROLOL SUCCINATE [Concomitant]
     Active Substance: METOPROLOL SUCCINATE
     Dosage: 25 MG
     Route: 065
  32. METOPROLOL SUCCINATE [Concomitant]
     Active Substance: METOPROLOL SUCCINATE
     Dosage: 50 MG
     Route: 065
  33. METOPROLOL SUCCINATE [Concomitant]
     Active Substance: METOPROLOL SUCCINATE
     Indication: Product used for unknown indication
     Dosage: UNK
     Route: 065
  34. SPIRONOLACTONE [Concomitant]
     Active Substance: SPIRONOLACTONE
     Indication: Product used for unknown indication
     Dosage: UNK
     Route: 065
  35. VENLAFAXINE [Concomitant]
     Active Substance: VENLAFAXINE HYDROCHLORIDE
     Indication: Product used for unknown indication
     Dosage: UNK
     Route: 065

REACTIONS (5)
  - Hypotension [Recovered/Resolved]
  - Nervousness [Unknown]
  - Alopecia [Not Recovered/Not Resolved]
  - Weight decreased [Unknown]
  - Decreased appetite [Not Recovered/Not Resolved]
